FAERS Safety Report 12847559 (Version 1)
Quarter: 2016Q4

REPORT INFORMATION
  Report Type: Spontaneous
  Country: FR (occurrence: FR)
  Receive Date: 20161014
  Receipt Date: 20161014
  Transmission Date: 20170207
  Serious: Yes (Hospitalization)
  Sender: FDA-Public Use
  Company Number: FR-ALLERGAN-1671948US

PATIENT
  Age: 49 Year
  Sex: Male

DRUGS (2)
  1. SEROPLEX TABLETS [Suspect]
     Active Substance: ESCITALOPRAM OXALATE
     Indication: SUICIDE ATTEMPT
     Dosage: 30 DF, SINGLE
     Route: 048
     Dates: start: 20160229, end: 20160229
  2. EFFERALGAN CODEINE [Suspect]
     Active Substance: ACETAMINOPHEN\CODEINE PHOSPHATE
     Indication: SUICIDE ATTEMPT
     Dosage: UNK
     Route: 065
     Dates: start: 20160229, end: 20160229

REACTIONS (5)
  - Suicide attempt [Unknown]
  - Coma [Recovered/Resolved]
  - Tachycardia [Recovered/Resolved]
  - Toxicity to various agents [Recovered/Resolved]
  - Hypotension [Recovered/Resolved]

NARRATIVE: CASE EVENT DATE: 20160229
